FAERS Safety Report 19375706 (Version 6)
Quarter: 2021Q4

REPORT INFORMATION
  Report Type: Spontaneous
  Country: PL (occurrence: PL)
  Receive Date: 20210604
  Receipt Date: 20211119
  Transmission Date: 20220303
  Serious: Yes (Life-Threatening, Hospitalization)
  Sender: FDA-Public Use
  Company Number: PL-CELGENE-POL-20210600417

PATIENT
  Age: 65 Year
  Sex: Male
  Weight: 80.5 kg

DRUGS (22)
  1. ABRAXANE [Suspect]
     Active Substance: PACLITAXEL
     Indication: Lung neoplasm malignant
     Dosage: 198 MILLIGRAM
     Route: 041
     Dates: start: 20210212
  2. SERPLULIMAB [Suspect]
     Active Substance: SERPLULIMAB
     Indication: Lung neoplasm malignant
     Dosage: 362.25 MILLIGRAM
     Route: 041
     Dates: start: 20210212
  3. CARBOPLATIN [Suspect]
     Active Substance: CARBOPLATIN
     Indication: Lung neoplasm malignant
     Dosage: 517 MILLIGRAM
     Route: 041
     Dates: start: 20210212
  4. ENOXAPARIN [Concomitant]
     Active Substance: ENOXAPARIN
     Indication: Aortic disorder
     Dosage: .4 MILLILITER
     Route: 058
     Dates: start: 201912
  5. INDAPAMIDE [Concomitant]
     Active Substance: INDAPAMIDE
     Indication: Hypertension
     Dosage: 1.5 MILLIGRAM
     Route: 048
     Dates: start: 201912
  6. PERINDOPRIL [Concomitant]
     Active Substance: PERINDOPRIL
     Indication: Hypertension
     Dosage: 5 MILLIGRAM
     Route: 048
     Dates: start: 2019
  7. BISOPROLOL [Concomitant]
     Active Substance: BISOPROLOL
     Indication: Hypertension
     Dosage: 2.5 MILLIGRAM
     Route: 048
     Dates: start: 2019, end: 20210320
  8. FORMOTEROLI [Concomitant]
     Indication: Chronic obstructive pulmonary disease
     Dosage: 12 UG
     Route: 055
     Dates: start: 2020
  9. GLYCOPYRRONIUM\INDACATEROL [Concomitant]
     Active Substance: GLYCOPYRRONIUM\INDACATEROL
     Indication: Chronic obstructive pulmonary disease
     Route: 055
     Dates: start: 2020
  10. GLYCOPYRRONIUM\INDACATEROL [Concomitant]
     Active Substance: GLYCOPYRRONIUM\INDACATEROL
     Route: 055
     Dates: start: 20210123
  11. ONDANSETRON [Concomitant]
     Active Substance: ONDANSETRON
     Indication: Prophylaxis of nausea and vomiting
     Dosage: ON EVERY DAY WITH CHEMOTHERAPY ADMINISTRATION
     Route: 048
     Dates: start: 20210212
  12. CLEMASTINE FUMARATE [Concomitant]
     Active Substance: CLEMASTINE FUMARATE
     Indication: Prophylaxis
     Route: 041
     Dates: start: 20210212
  13. PREDNISONE [Concomitant]
     Active Substance: PREDNISONE
     Indication: Premedication
     Route: 048
     Dates: start: 20210212
  14. SODIUM CHLORIDE [Concomitant]
     Active Substance: SODIUM CHLORIDE
     Indication: Prophylaxis
     Route: 041
     Dates: start: 20210212
  15. ELECTROLYTES NOS [Concomitant]
     Active Substance: ELECTROLYTES NOS
     Indication: Prophylaxis
     Route: 041
     Dates: start: 20210212
  16. FUROSEMIDE [Concomitant]
     Active Substance: FUROSEMIDE
     Indication: Prophylaxis
     Route: 041
     Dates: start: 20210212
  17. MAGNESIUM SULFATE [Concomitant]
     Active Substance: MAGNESIUM SULFATE
     Indication: Prophylaxis
     Route: 041
     Dates: start: 20210212
  18. ZINC OXIDE [Concomitant]
     Active Substance: ZINC OXIDE
     Indication: Rash
     Route: 061
     Dates: start: 20210225, end: 20210310
  19. CETIRIZINE [Concomitant]
     Active Substance: CETIRIZINE HYDROCHLORIDE
     Indication: Rash
     Dosage: 10 MILLIGRAM
     Route: 048
     Dates: start: 20210224, end: 20210304
  20. CETIRIZINE [Concomitant]
     Active Substance: CETIRIZINE HYDROCHLORIDE
     Dosage: 10 MILLIGRAM
     Route: 048
     Dates: start: 20210224, end: 20210304
  21. PREDNISONE [Concomitant]
     Active Substance: PREDNISONE
     Indication: Product used for unknown indication
     Dosage: 5 MILLIGRAM
     Route: 048
     Dates: start: 20210212
  22. PACLITAXEL [Concomitant]
     Active Substance: PACLITAXEL
     Indication: Lung neoplasm malignant
     Dosage: 198 MILLIGRAM
     Route: 041
     Dates: start: 20210212

REACTIONS (2)
  - Neutropenia [Recovered/Resolved]
  - Neutropenia [Recovered/Resolved]

NARRATIVE: CASE EVENT DATE: 20210303
